FAERS Safety Report 23040588 (Version 1)
Quarter: 2023Q4

REPORT INFORMATION
  Report Type: Other
  Country: US (occurrence: US)
  Receive Date: 20231006
  Receipt Date: 20231006
  Transmission Date: 20240110
  Serious: Yes (Death)
  Sender: FDA-Public Use
  Company Number: US-TRAVERE-2023TVT00252

PATIENT
  Age: 5 Year
  Sex: Male

DRUGS (18)
  1. CHOLBAM [Suspect]
     Active Substance: CHOLIC ACID
     Indication: Cerebrohepatorenal syndrome
     Route: 048
     Dates: start: 20190612, end: 20230612
  2. MINERALS\VITAMINS [Concomitant]
     Active Substance: MINERALS\VITAMINS
  3. CLONIDINE [Concomitant]
     Active Substance: CLONIDINE
  4. d vi sol [Concomitant]
  5. DIASTAT [Concomitant]
     Active Substance: DIAZEPAM
  6. FLUDROCORTISONE [Concomitant]
     Active Substance: FLUDROCORTISONE
  7. GABAPENTIN [Concomitant]
     Active Substance: GABAPENTIN
  8. GENTLE LAXATIVE [Concomitant]
  9. HYDROCORTISONE [Concomitant]
     Active Substance: HYDROCORTISONE
  10. LAMICTAL [Concomitant]
     Active Substance: LAMOTRIGINE
  11. MEPHYTON [Concomitant]
     Active Substance: PHYTONADIONE
  12. MONTELUKAST [Concomitant]
     Active Substance: MONTELUKAST SODIUM
  13. NEXIUM [Concomitant]
     Active Substance: ESOMEPRAZOLE MAGNESIUM
  14. ONDANSETRON [Concomitant]
     Active Substance: ONDANSETRON
  15. phos nak [Concomitant]
  16. TRILEPTAL [Concomitant]
     Active Substance: OXCARBAZEPINE
  17. VITAMIN K [Concomitant]
     Active Substance: PHYTONADIONE
  18. SENNA [Concomitant]
     Active Substance: SENNA LEAF\SENNOSIDES\SENNOSIDES A AND B

REACTIONS (1)
  - Death [Fatal]

NARRATIVE: CASE EVENT DATE: 20230613
